FAERS Safety Report 18470704 (Version 4)
Quarter: 2021Q2

REPORT INFORMATION
  Report Type: Report from Study
  Country: JP (occurrence: JP)
  Receive Date: 20201106
  Receipt Date: 20210420
  Transmission Date: 20210717
  Serious: Yes (Hospitalization, Disabling, Other)
  Sender: FDA-Public Use
  Company Number: JP-ADVANZ PHARMA-202010009825

PATIENT

DRUGS (70)
  1. ZONISAMIDE. [Suspect]
     Active Substance: ZONISAMIDE
     Indication: PARTIAL SEIZURES
     Dosage: 250 MG, QD, TABLET, EXCEGRAN
     Route: 048
  2. FYCOMPA [Suspect]
     Active Substance: PERAMPANEL
     Dosage: 4 MG, QD
     Route: 048
     Dates: start: 20190604
  3. PHENOBAL [Suspect]
     Active Substance: PHENOBARBITAL
     Dosage: 180 MG, QD
     Route: 048
     Dates: start: 20200413
  4. RIVOTRIL [Suspect]
     Active Substance: CLONAZEPAM
     Dosage: 3 MG, QD
     Route: 048
     Dates: start: 20190712
  5. RIVOTRIL [Suspect]
     Active Substance: CLONAZEPAM
     Dosage: 2 MG, QD
     Route: 048
     Dates: start: 20191115
  6. RIVOTRIL [Suspect]
     Active Substance: CLONAZEPAM
     Dosage: 5 MG, QD
     Route: 048
     Dates: start: 20200401
  7. VIMPAT [Suspect]
     Active Substance: LACOSAMIDE
     Dosage: 150 MG, QD
     Route: 048
     Dates: start: 20190125
  8. VIMPAT [Suspect]
     Active Substance: LACOSAMIDE
     Dosage: 250 MG, QD
     Route: 048
     Dates: start: 20190222
  9. LAC?B [Concomitant]
     Active Substance: BIFIDOBACTERIUM SPP.
     Route: 065
  10. ANHIBA [Concomitant]
     Active Substance: ACETAMINOPHEN
     Route: 065
  11. ZONISAMIDE. [Suspect]
     Active Substance: ZONISAMIDE
     Dosage: 250 MG, QD, TABLET, EXCEGRAN
     Route: 048
     Dates: start: 20200303
  12. INOVELON [Suspect]
     Active Substance: RUFINAMIDE
     Dosage: 1800 MG, QD
     Route: 048
     Dates: start: 20180718, end: 202005
  13. RIVOTRIL [Suspect]
     Active Substance: CLONAZEPAM
     Dosage: 2 MG, QD
     Route: 048
     Dates: start: 20190614
  14. RIVOTRIL [Suspect]
     Active Substance: CLONAZEPAM
     Dosage: 2 MG, QD
     Route: 048
     Dates: start: 20190919
  15. RIVOTRIL [Suspect]
     Active Substance: CLONAZEPAM
     Dosage: 1 MG, QD
     Route: 048
     Dates: start: 20191007
  16. RIVOTRIL [Suspect]
     Active Substance: CLONAZEPAM
     Dosage: 1.5 MG, QD
     Route: 048
     Dates: start: 20191101
  17. RIVOTRIL [Suspect]
     Active Substance: CLONAZEPAM
     Dosage: 6 MG, QD
     Route: 048
     Dates: start: 20200618
  18. VIMPAT [Suspect]
     Active Substance: LACOSAMIDE
     Dosage: 400 MG, QD
     Route: 048
     Dates: start: 20190405
  19. VIMPAT [Suspect]
     Active Substance: LACOSAMIDE
     Dosage: 300 MG, QD
     Route: 048
     Dates: start: 20200716
  20. MUCODYNE [Concomitant]
     Active Substance: CARBOCYSTEINE
     Route: 065
  21. MIDAFRESA [Concomitant]
     Indication: PARTIAL SEIZURES
     Dosage: UNK
     Route: 065
     Dates: start: 20200402, end: 20200410
  22. RIVOTRIL [Suspect]
     Active Substance: CLONAZEPAM
     Indication: PARTIAL SEIZURES
     Dosage: 2.5 MG, QD
     Route: 048
  23. VIMPAT [Suspect]
     Active Substance: LACOSAMIDE
     Dosage: 250 MG, QD
     Route: 048
     Dates: start: 20200713
  24. ESCRE [Concomitant]
     Active Substance: CHLORAL HYDRATE
     Indication: EPILEPSY
     Dosage: UNK
  25. WAKOBITAL [Concomitant]
     Indication: EPILEPSY
     Dosage: UNK
  26. SUCRALFATE HYDRATE [Concomitant]
     Active Substance: SUCRALFATE
     Route: 065
  27. ZONISAMIDE. [Suspect]
     Active Substance: ZONISAMIDE
     Dosage: 350 MG, QD, TABLET, EXCEGRAN
     Route: 048
     Dates: start: 20200413
  28. FYCOMPA [Suspect]
     Active Substance: PERAMPANEL
     Dosage: 5 MG, QD
     Route: 048
     Dates: start: 20180910
  29. FYCOMPA [Suspect]
     Active Substance: PERAMPANEL
     Dosage: 6 MG, QD
     Route: 048
     Dates: start: 20190906
  30. RIVOTRIL [Suspect]
     Active Substance: CLONAZEPAM
     Dosage: 2.5 MG, QD
     Route: 048
     Dates: start: 20190628
  31. VIMPAT [Suspect]
     Active Substance: LACOSAMIDE
     Indication: PARTIAL SEIZURES
     Dosage: 70 MG, QD
     Route: 048
     Dates: start: 20181217
  32. VIMPAT [Suspect]
     Active Substance: LACOSAMIDE
     Dosage: 300 MG, QD
     Route: 048
     Dates: start: 20190308
  33. VIMPAT [Suspect]
     Active Substance: LACOSAMIDE
     Dosage: 350 MG, QD
     Route: 048
     Dates: start: 20190323
  34. WAKOBITAL [Concomitant]
     Indication: PARTIAL SEIZURES
     Dosage: UNK
     Route: 065
  35. TAMIFLU [Concomitant]
     Active Substance: OSELTAMIVIR PHOSPHATE
     Dosage: UNK
     Route: 065
  36. UNASYN [Concomitant]
     Active Substance: AMPICILLIN SODIUM\SULBACTAM SODIUM
     Indication: EPILEPSY
     Dosage: UNK
     Route: 065
     Dates: start: 20200402, end: 20200410
  37. UNASYN [Concomitant]
     Active Substance: AMPICILLIN SODIUM\SULBACTAM SODIUM
     Indication: PARTIAL SEIZURES
     Dosage: UNK
  38. CERCINE [Concomitant]
     Active Substance: DIAZEPAM
     Indication: PARTIAL SEIZURES
     Dosage: UNK
     Route: 065
     Dates: start: 20200410, end: 20200410
  39. ZONISAMIDE. [Suspect]
     Active Substance: ZONISAMIDE
     Dosage: 400 MG, QD, TABLET, EXCEGRAN
     Route: 048
     Dates: start: 20200425
  40. FYCOMPA [Suspect]
     Active Substance: PERAMPANEL
     Dosage: 3 MG, QD
     Route: 048
     Dates: start: 20200208
  41. RIVOTRIL [Suspect]
     Active Substance: CLONAZEPAM
     Dosage: 4 MG, QD
     Route: 048
     Dates: start: 20200326
  42. MALT EXTRACT [Concomitant]
     Route: 065
  43. MOVICOL [Concomitant]
     Active Substance: POLYETHYLENE GLYCOL 3350\POTASSIUM CHLORIDE\SODIUM BICARBONATE\SODIUM CHLORIDE
     Route: 065
  44. ESCRE [Concomitant]
     Active Substance: CHLORAL HYDRATE
     Indication: PARTIAL SEIZURES
     Dosage: UNK
     Route: 065
  45. MIDAFRESA [Concomitant]
     Indication: EPILEPSY
     Dosage: UNK
  46. FYCOMPA [Suspect]
     Active Substance: PERAMPANEL
     Indication: EPILEPSY
     Dosage: 2 MG, QD
     Route: 048
     Dates: start: 20180724
  47. FYCOMPA [Suspect]
     Active Substance: PERAMPANEL
     Dosage: 6 MG, QD
     Route: 048
     Dates: start: 20180821
  48. RIVOTRIL [Suspect]
     Active Substance: CLONAZEPAM
     Dosage: 1.5 MG, QD
     Route: 048
     Dates: start: 20190125
  49. RIVOTRIL [Suspect]
     Active Substance: CLONAZEPAM
     Dosage: 1 MG, QD
     Route: 048
     Dates: start: 20190419
  50. RIVOTRIL [Suspect]
     Active Substance: CLONAZEPAM
     Dosage: 2.5 MG, QD
     Route: 048
     Dates: start: 20191202
  51. VIMPAT [Suspect]
     Active Substance: LACOSAMIDE
     Dosage: 300 MG, QD
     Route: 048
     Dates: start: 20190629
  52. DAIKENCHUTO [Concomitant]
     Active Substance: HERBALS
     Dosage: UNK
     Route: 065
  53. DIAPP [Concomitant]
     Active Substance: DIAZEPAM
     Indication: PARTIAL SEIZURES
     Dosage: UNK
  54. ZONISAMIDE. [Suspect]
     Active Substance: ZONISAMIDE
     Indication: EPILEPSY
     Dosage: 255 MG, QD, TABLET, EXCEGRAN
     Route: 048
     Dates: start: 20190717
  55. INOVELON [Suspect]
     Active Substance: RUFINAMIDE
     Indication: EPILEPSY
     Dosage: 1700 MG, QD
     Route: 048
     Dates: start: 20180627
  56. RIVOTRIL [Suspect]
     Active Substance: CLONAZEPAM
     Dosage: 1.5 MG, QD
     Route: 048
     Dates: start: 20190520
  57. VIMPAT [Suspect]
     Active Substance: LACOSAMIDE
     Indication: EPILEPSY
     Dosage: 100 MG, QD
     Route: 048
     Dates: start: 20181226
  58. VIMPAT [Suspect]
     Active Substance: LACOSAMIDE
     Dosage: 200 MG, QD
     Route: 048
     Dates: start: 20190208
  59. TRICLORY [Concomitant]
     Route: 065
  60. FYCOMPA [Suspect]
     Active Substance: PERAMPANEL
     Indication: PARTIAL SEIZURES
     Dosage: 4 MG, QD
     Route: 048
     Dates: start: 20180807
  61. INOVELON [Suspect]
     Active Substance: RUFINAMIDE
     Indication: PARTIAL SEIZURES
     Dosage: 1600 MG, QD
     Route: 048
  62. PHENOBAL [Suspect]
     Active Substance: PHENOBARBITAL
     Indication: PARTIAL SEIZURES
     Dosage: 120 MG, QD
     Route: 048
  63. PHENOBAL [Suspect]
     Active Substance: PHENOBARBITAL
     Indication: EPILEPSY
     Dosage: 150 MG, QD
     Route: 048
     Dates: start: 20200303
  64. RIVOTRIL [Suspect]
     Active Substance: CLONAZEPAM
     Indication: EPILEPSY
     Dosage: 2 MG, QD
     Route: 048
     Dates: start: 20190111
  65. RIVOTRIL [Suspect]
     Active Substance: CLONAZEPAM
     Dosage: 3 MG, QD
     Route: 048
     Dates: start: 20191212
  66. MAGNESIUM OXIDE. [Concomitant]
     Active Substance: MAGNESIUM OXIDE
     Dosage: UNK
     Route: 065
  67. LAXOBERON [Concomitant]
     Active Substance: SODIUM PICOSULFATE
     Route: 065
  68. DIAPP [Concomitant]
     Active Substance: DIAZEPAM
     Indication: EPILEPSY
     Dosage: UNK
     Route: 065
  69. PULLSMALIN R [Concomitant]
     Route: 065
  70. CERCINE [Concomitant]
     Active Substance: DIAZEPAM
     Indication: EPILEPSY

REACTIONS (2)
  - Status epilepticus [Recovered/Resolved]
  - Dysphagia [Not Recovered/Not Resolved]

NARRATIVE: CASE EVENT DATE: 202002
